FAERS Safety Report 8454802-5 (Version None)
Quarter: 2012Q2

REPORT INFORMATION
  Report Type: 
  Country: None (occurrence: None)
  Receive Date: 20120615
  Receipt Date: 20120615
  Transmission Date: 20120825
  Serious: No
  Sender: FDA-Public Use
  Company Number: None

PATIENT
  Sex: Male
  Weight: 72.5755 kg

DRUGS (2)
  1. CIPROFLOXACIN HCL [Suspect]
     Indication: BACTERIAL INFECTION
     Dosage: 500 MG TWICE DAILY
     Dates: start: 20120610
  2. CIPROFLOXACIN HCL [Suspect]
     Indication: BACTERIAL INFECTION
     Dosage: 500 MG TWICE DAILY
     Dates: start: 20120609

REACTIONS (3)
  - PROSTATOMEGALY [None]
  - HEART RATE ABNORMAL [None]
  - CHEST PAIN [None]
